FAERS Safety Report 11811567 (Version 1)
Quarter: 2015Q4

REPORT INFORMATION
  Report Type: Spontaneous
  Country: US (occurrence: US)
  Receive Date: 20151208
  Receipt Date: 20151208
  Transmission Date: 20160305
  Serious: No
  Sender: FDA-Public Use
  Company Number: US-APOTEX-2015AP011409

PATIENT
  Sex: Female

DRUGS (1)
  1. FENTANYL TRANSDERMAL SYSTEM [Suspect]
     Active Substance: FENTANYL
     Indication: PRODUCT USED FOR UNKNOWN INDICATION
     Dosage: 150 ?G/48HRS
     Route: 062

REACTIONS (6)
  - Application site erythema [Unknown]
  - Application site pain [Unknown]
  - Pain [Unknown]
  - Application site pruritus [Unknown]
  - Drug withdrawal syndrome [Unknown]
  - Application site rash [Unknown]
